FAERS Safety Report 6547966-1 (Version None)
Quarter: 2010Q1

REPORT INFORMATION
  Report Type: 
  Country: None (occurrence: None)
  Receive Date: 20100124
  Receipt Date: 20091119
  Transmission Date: 20100710
  Serious: Yes (Hospitalization)
  Sender: FDA-Public Use
  Company Number: US-ALEXION-A200900960

PATIENT
  Sex: Female
  Weight: 93.696 kg

DRUGS (13)
  1. SOLIRIS [Suspect]
     Indication: PROPHYLAXIS AGAINST TRANSPLANT REJECTION
     Dosage: 1200 MG, 2
     Route: 042
  2. SOLIRIS [Suspect]
     Dosage: 600 MG, 12
     Route: 042
  3. CELLCEPT [Suspect]
     Dosage: 750 MG, BID
     Route: 048
  4. TACROLIMUS [Suspect]
     Dosage: 5 MG, BID
     Route: 048
  5. PREDNISONE TAB [Suspect]
     Indication: RENAL TRANSPLANT
     Dosage: 25 MG, QD
     Route: 048
  6. PREDNISONE TAB [Suspect]
     Dosage: 5 MG QD  (WITH 20 MG QD = TOTAL 25 MG)
     Route: 048
  7. AMBIEN [Concomitant]
     Indication: SLEEP DISORDER
     Dosage: 10 MG AT HS PRN
     Route: 048
  8. AMLODIPINE [Concomitant]
     Dosage: 10 MG  (1/2 TAB) QD
     Route: 048
  9. AMIODARONE [Concomitant]
     Dosage: 200 MG QD
     Route: 048
  10. COLACE [Concomitant]
     Dosage: 100 MG BID
     Route: 048
  11. MULTIVITAMIN                       /00831701/ [Concomitant]
     Dosage: 1 CAPSULE QD
     Route: 048
  12. PRILOSEC [Concomitant]
     Dosage: 20 MG QD
     Route: 048
  13. VALCYTE [Concomitant]
     Dosage: 450 MG QD
     Route: 048

REACTIONS (1)
  - BLOOD POTASSIUM INCREASED [None]
